FAERS Safety Report 6898372-1 (Version None)
Quarter: 2010Q3

REPORT INFORMATION
  Report Type: 
  Country: None (occurrence: None)
  Receive Date: 20100802
  Receipt Date: 20071009
  Transmission Date: 20110219
  Serious: No
  Sender: FDA-Public Use
  Company Number: US-PFIZER INC-2007076201

PATIENT
  Sex: Male
  Weight: 95.4 kg

DRUGS (5)
  1. LYRICA [Suspect]
     Indication: PAIN IN EXTREMITY
     Dates: start: 20070801
  2. ACTOS [Concomitant]
     Indication: DIABETES MELLITUS
  3. ACTOS [Concomitant]
  4. INSULIN [Concomitant]
     Indication: DIABETES MELLITUS
  5. INSULIN [Concomitant]

REACTIONS (2)
  - INSOMNIA [None]
  - PAIN IN EXTREMITY [None]
